FAERS Safety Report 7476930-3 (Version None)
Quarter: 2011Q2

REPORT INFORMATION
  Report Type: 
  Country: None (occurrence: None)
  Receive Date: 20110512
  Receipt Date: 20110429
  Transmission Date: 20111010
  Serious: Yes (Other)
  Sender: FDA-Public Use
  Company Number: US-BAYER-2011-038311

PATIENT
  Age: 18 Year
  Sex: Male
  Weight: 77 kg

DRUGS (1)
  1. ALEVE (CAPLET) [Suspect]
     Dosage: 2640 MG, ONCE
     Route: 048
     Dates: start: 20110428

REACTIONS (2)
  - DIZZINESS [None]
  - COUGH [None]
